FAERS Safety Report 10921068 (Version 1)
Quarter: 2015Q1

REPORT INFORMATION
  Report Type: Spontaneous
  Country: US (occurrence: None)
  Receive Date: 20150313
  Receipt Date: 20150313
  Transmission Date: 20150721
  Serious: No
  Sender: FDA-Public Use
  Company Number: None

PATIENT
  Age: 67 Year
  Sex: Male

DRUGS (2)
  1. AFINITOR [Suspect]
     Active Substance: EVEROLIMUS
     Indication: LUNG NEOPLASM MALIGNANT
     Route: 048
     Dates: start: 20150216
  2. AFINITOR [Suspect]
     Active Substance: EVEROLIMUS
     Indication: METASTASES TO LIVER
     Route: 048
     Dates: start: 20150216

REACTIONS (3)
  - Sunburn [None]
  - Diarrhoea [None]
  - Stomatitis [None]

NARRATIVE: CASE EVENT DATE: 20150308
